FAERS Safety Report 7846399-5 (Version None)
Quarter: 2011Q4

REPORT INFORMATION
  Report Type: 
  Country: None (occurrence: None)
  Receive Date: 20111025
  Receipt Date: 20111025
  Transmission Date: 20120403
  Serious: Yes (Other)
  Sender: FDA-Public Use
  Company Number: None

PATIENT
  Age: 8 Year
  Sex: Male
  Weight: 30.39 kg

DRUGS (1)
  1. VYVANSE [Suspect]
     Indication: ATTENTION DEFICIT/HYPERACTIVITY DISORDER
     Dosage: 30 MG
     Route: 048
     Dates: start: 20110104, end: 20111014

REACTIONS (5)
  - DRUG EFFECT DECREASED [None]
  - WEIGHT DECREASED [None]
  - VISION BLURRED [None]
  - DECREASED APPETITE [None]
  - TOURETTE'S DISORDER [None]
